FAERS Safety Report 9625781 (Version 1)
Quarter: 2013Q4

REPORT INFORMATION
  Report Type: Spontaneous
  Country: US (occurrence: None)
  Receive Date: 20131015
  Receipt Date: 20131015
  Transmission Date: 20140711
  Serious: Yes (Life-Threatening)
  Sender: FDA-Public Use
  Company Number: None

PATIENT
  Age: 18 Year
  Sex: Female
  Weight: 61.24 kg

DRUGS (2)
  1. DEPO-PROVERA [Suspect]
     Indication: CONTRACEPTION
     Dosage: 1 INJECTION, INTO THE MUSCLE
     Route: 030
  2. DEPO-PROVERA [Suspect]
     Indication: DYSMENORRHOEA
     Dosage: 1 INJECTION, INTO THE MUSCLE
     Route: 030

REACTIONS (5)
  - Anxiety [None]
  - Abdominal pain upper [None]
  - Depression [None]
  - Suicidal ideation [None]
  - Sleep disorder [None]
